FAERS Safety Report 18417123 (Version 2)
Quarter: 2020Q4

REPORT INFORMATION
  Report Type: Spontaneous
  Country: PT (occurrence: PT)
  Receive Date: 20201022
  Receipt Date: 20201117
  Transmission Date: 20210114
  Serious: Yes (Other)
  Sender: FDA-Public Use
  Company Number: PT-US-PROVELL PHARMACEUTICALS LLC-E2B_90080867

PATIENT
  Age: 42 Year
  Sex: Female
  Weight: 72 kg

DRUGS (2)
  1. YASMINELLE [Concomitant]
     Active Substance: DROSPIRENONE
     Indication: PRODUCT USED FOR UNKNOWN INDICATION
     Route: 048
  2. EUTIROX [Suspect]
     Active Substance: LEVOTHYROXINE SODIUM
     Indication: AUTOIMMUNE THYROIDITIS
     Dosage: 1 TABLET TAKE UNDER FASTING CONDITIONS, 30 MINUTES BEFORE BREAKFAST FOR HASHIMOTO HYPOTHYROIDISM
     Route: 048
     Dates: start: 20200922

REACTIONS (3)
  - Generalised oedema [Unknown]
  - Product formulation issue [Unknown]
  - Weight increased [Unknown]

NARRATIVE: CASE EVENT DATE: 20200922
